FAERS Safety Report 13532857 (Version 2)
Quarter: 2017Q2

REPORT INFORMATION
  Report Type: Spontaneous
  Country: US (occurrence: US)
  Receive Date: 20170510
  Receipt Date: 20170524
  Transmission Date: 20170830
  Serious: Yes (Hospitalization)
  Sender: FDA-Public Use
  Company Number: US-PFIZER INC-2017200668

PATIENT
  Age: 11 Year
  Sex: Female
  Weight: 85 kg

DRUGS (11)
  1. GENOTROPIN MQ [Suspect]
     Active Substance: SOMATROPIN
     Indication: PRADER-WILLI SYNDROME
     Dosage: 1.2 MG, DAILY
     Route: 058
  2. GENOTROPIN MQ [Suspect]
     Active Substance: SOMATROPIN
     Dosage: UNK, ALTERNATE DAY (EVERY OTHER DAY)
  3. PREDNISONE. [Concomitant]
     Active Substance: PREDNISONE
     Dosage: 40 MG, 1X/DAY
  4. ARIPIPRAZOLE. [Concomitant]
     Active Substance: ARIPIPRAZOLE
     Dosage: UNK
  5. ZYRTEC [Concomitant]
     Active Substance: CETIRIZINE HYDROCHLORIDE
  6. GENOTROPIN MQ [Suspect]
     Active Substance: SOMATROPIN
     Indication: GROWTH HORMONE DEFICIENCY
     Dosage: 1.4 MG, DAILY
     Route: 058
     Dates: start: 2005
  7. HYDROXYZINE [Concomitant]
     Active Substance: HYDROXYZINE HYDROCHLORIDE
     Dosage: UNK UNK, AS NEEDED
  8. INTROVALE [Concomitant]
     Active Substance: ETHINYL ESTRADIOL\LEVONORGESTREL
     Dosage: UNK
     Route: 048
  9. FLUOXETINE [Concomitant]
     Active Substance: FLUOXETINE HYDROCHLORIDE
     Dosage: UNK
  10. MELATONIN [Concomitant]
     Active Substance: MELATONIN
  11. ADDERALL [Concomitant]
     Active Substance: AMPHETAMINE ASPARTATE\AMPHETAMINE SULFATE\DEXTROAMPHETAMINE SACCHARATE\DEXTROAMPHETAMINE SULFATE
     Dosage: UNK

REACTIONS (5)
  - Weight increased [Unknown]
  - Intentional product misuse [Unknown]
  - Inflammatory bowel disease [Unknown]
  - Anaemia [Unknown]
  - Vitamin D deficiency [Unknown]
